FAERS Safety Report 8491834-5 (Version None)
Quarter: 2012Q3

REPORT INFORMATION
  Report Type: 
  Country: None (occurrence: None)
  Receive Date: 20120706
  Receipt Date: 20110616
  Transmission Date: 20120928
  Serious: No
  Sender: FDA-Public Use
  Company Number: US-GLAXOSMITHKLINE-A0931732A

PATIENT
  Age: 4 Year
  Sex: Male

DRUGS (2)
  1. NO CONCURRENT MEDICATION [Concomitant]
  2. FLOVENT [Suspect]
     Indication: MULTIPLE ALLERGIES
     Dosage: 2PUFF AS REQUIRED
     Route: 055
     Dates: start: 20110601

REACTIONS (2)
  - FOREIGN BODY ASPIRATION [None]
  - PRODUCT QUALITY ISSUE [None]
